FAERS Safety Report 20340193 (Version 3)
Quarter: 2024Q2

REPORT INFORMATION
  Report Type: Spontaneous
  Country: PT (occurrence: PT)
  Receive Date: 20220117
  Receipt Date: 20240429
  Transmission Date: 20240716
  Serious: Yes (Hospitalization, Other)
  Sender: FDA-Public Use
  Company Number: PT-Accord-249959

PATIENT
  Age: 65 Year
  Sex: Female

DRUGS (3)
  1. DOCETAXEL [Suspect]
     Active Substance: DOCETAXEL\DOCETAXEL ANHYDROUS
     Indication: Leiomyosarcoma
     Dosage: FIRST CYCLE
  2. GEMCITABINE [Suspect]
     Active Substance: GEMCITABINE
     Indication: Leiomyosarcoma
     Dosage: FIRST CYCLE
  3. TRABECTEDIN [Concomitant]
     Active Substance: TRABECTEDIN
     Indication: Leiomyosarcoma

REACTIONS (4)
  - Pancytopenia [Unknown]
  - Hepatic function abnormal [Unknown]
  - Off label use [Unknown]
  - Renal impairment [Unknown]
